FAERS Safety Report 8319954-6 (Version None)
Quarter: 2012Q2

REPORT INFORMATION
  Report Type: 
  Country: None (occurrence: None)
  Receive Date: 20120427
  Receipt Date: 20120416
  Transmission Date: 20120825
  Serious: Yes (Other)
  Sender: FDA-Public Use
  Company Number: US-ROCHE-GNE266309

PATIENT
  Sex: Female
  Weight: 63.067 kg

DRUGS (5)
  1. VALTREX [Concomitant]
     Indication: HERPES VIRUS INFECTION
     Dosage: 500 MG, QD
     Route: 048
     Dates: start: 20080810
  2. PROVENTIL-HFA [Concomitant]
     Indication: DYSPNOEA
     Dosage: 2 PUFF, PRN, DOSE=2 PUFF
     Route: 055
     Dates: start: 20030101
  3. ADVAIR DISKUS 100/50 [Concomitant]
     Indication: ASTHMA
     Dosage: UNK
  4. OMALIZUMAB [Suspect]
     Indication: ASTHMA
     Dosage: UNK MG, Q4W
     Route: 058
     Dates: start: 20050331
  5. MULTI-VITAMINS [Concomitant]
     Indication: PREGNANCY
     Dosage: UNK

REACTIONS (2)
  - FOETAL DEATH [None]
  - MATERNAL EXPOSURE DURING PREGNANCY [None]
